FAERS Safety Report 19890137 (Version 3)
Quarter: 2021Q4

REPORT INFORMATION
  Report Type: Spontaneous
  Country: US (occurrence: US)
  Receive Date: 20210927
  Receipt Date: 20211112
  Transmission Date: 20220304
  Serious: Yes (Other)
  Sender: FDA-Public Use
  Company Number: US-PFIZER INC-2021881006

PATIENT
  Age: 58 Year
  Sex: Female

DRUGS (1)
  1. XELJANZ [Suspect]
     Active Substance: TOFACITINIB CITRATE
     Indication: Rheumatoid arthritis
     Dosage: 5 MG, 2X/DAY
     Route: 048
     Dates: start: 20210629, end: 20210923

REACTIONS (11)
  - Respiratory tract infection [Unknown]
  - Drug ineffective [Unknown]
  - Inappropriate schedule of product administration [Unknown]
  - Product dose omission issue [Unknown]
  - Depressed mood [Unknown]
  - Memory impairment [Unknown]
  - Sinusitis [Unknown]
  - Ear infection [Unknown]
  - Illness [Recovered/Resolved]
  - Blood cholesterol increased [Recovered/Resolved]
  - Product dose omission in error [Unknown]
